FAERS Safety Report 21614971 (Version 1)
Quarter: 2022Q4

REPORT INFORMATION
  Report Type: Spontaneous
  Country: US (occurrence: None)
  Receive Date: 20221118
  Receipt Date: 20221118
  Transmission Date: 20230112
  Serious: No
  Sender: FDA-Public Use
  Company Number: None

PATIENT
  Age: 33 Year
  Sex: Female
  Weight: 60.75 kg

DRUGS (7)
  1. CLONAZEPAM [Suspect]
     Active Substance: CLONAZEPAM
     Indication: Insomnia
     Dosage: OTHER QUANTITY : 30 TABLET(S);?FREQUENCY : AT BEDTIME;?
     Route: 048
     Dates: start: 20221116, end: 20221118
  2. CLONAZEPAM [Suspect]
     Active Substance: CLONAZEPAM
     Indication: Parasomnia
  3. ADVAIR HFA [Concomitant]
     Active Substance: FLUTICASONE PROPIONATE\SALMETEROL XINAFOATE
  4. ALBUTEROL [Concomitant]
     Active Substance: ALBUTEROL
  5. VITAMINS [Concomitant]
     Active Substance: VITAMINS
  6. IRON [Concomitant]
     Active Substance: IRON
  7. OMEGA 3 [Concomitant]
     Active Substance: CAPSAICIN

REACTIONS (6)
  - Manufacturing issue [None]
  - Product quality issue [None]
  - Drug ineffective [None]
  - Rebound effect [None]
  - Sleep deficit [None]
  - Job dissatisfaction [None]

NARRATIVE: CASE EVENT DATE: 20221118
